FAERS Safety Report 8446893-2 (Version None)
Quarter: 2012Q2

REPORT INFORMATION
  Report Type: 
  Country: None (occurrence: None)
  Receive Date: 20120613
  Receipt Date: 20120613
  Transmission Date: 20120825
  Serious: No
  Sender: FDA-Public Use
  Company Number: None

PATIENT
  Sex: Female
  Weight: 68.0396 kg

DRUGS (1)
  1. LAMOTRIGINE [Suspect]
     Dosage: 100MG QD PO  FEW DOSES
     Route: 048

REACTIONS (4)
  - RESPIRATORY DISTRESS [None]
  - SUICIDAL IDEATION [None]
  - PRODUCT QUALITY ISSUE [None]
  - PRODUCT SUBSTITUTION ISSUE [None]
